FAERS Safety Report 24687649 (Version 1)
Quarter: 2024Q4

REPORT INFORMATION
  Report Type: Spontaneous
  Country: TR (occurrence: TR)
  Receive Date: 20241202
  Receipt Date: 20241202
  Transmission Date: 20250115
  Serious: Yes (Other)
  Sender: BAYER HEALTHCARE PHARMACEUTICALS INC.
  Company Number: TR-BAYER-2024A167477

PATIENT
  Age: 68 Year
  Sex: Male

DRUGS (2)
  1. STIVARGA [Suspect]
     Active Substance: REGORAFENIB MONOHYDRATE
     Indication: Rectal cancer metastatic
     Dosage: 80 MG, QD
     Dates: start: 202310
  2. STIVARGA [Suspect]
     Active Substance: REGORAFENIB MONOHYDRATE
     Indication: Rectal cancer metastatic
     Dosage: 120 MG, QD
     Dates: start: 202310

REACTIONS (7)
  - Pneumonitis [None]
  - Hepatic lesion [None]
  - Hypothyroidism [None]
  - Diarrhoea [None]
  - Asthenia [None]
  - Palmar-plantar erythrodysaesthesia syndrome [None]
  - Product use issue [None]

NARRATIVE: CASE EVENT DATE: 20231001
